FAERS Safety Report 9614774 (Version 1)
Quarter: 2013Q4

REPORT INFORMATION
  Report Type: Spontaneous
  Country: US (occurrence: None)
  Receive Date: 20131009
  Receipt Date: 20131009
  Transmission Date: 20140711
  Serious: Yes (Hospitalization, Disabling)
  Sender: FDA-Public Use
  Company Number: None

PATIENT
  Age: 57 Year
  Sex: Male
  Weight: 86.18 kg

DRUGS (1)
  1. GEODON [Suspect]
     Indication: BIPOLAR DISORDER

REACTIONS (8)
  - Paraesthesia [None]
  - Tremor [None]
  - Aphagia [None]
  - Insomnia [None]
  - Anxiety [None]
  - Drug withdrawal syndrome [None]
  - Agitation [None]
  - Psychotic disorder [None]
